FAERS Safety Report 12343731 (Version 5)
Quarter: 2019Q2

REPORT INFORMATION
  Report Type: Report from Study
  Country: CR (occurrence: CR)
  Receive Date: 20160507
  Receipt Date: 20190626
  Transmission Date: 20190711
  Serious: Yes (Other)
  Sender: FDA-Public Use
  Company Number: PHHY2015CR097990

PATIENT
  Sex: Female
  Weight: 83 kg

DRUGS (4)
  1. HYDROCORTISONE. [Concomitant]
     Active Substance: HYDROCORTISONE
     Indication: PRODUCT USED FOR UNKNOWN INDICATION
     Route: 065
  2. FAMOTIDINE. [Concomitant]
     Active Substance: FAMOTIDINE
     Indication: PRODUCT USED FOR UNKNOWN INDICATION
     Route: 065
  3. SANDOSTATIN LAR DEPOT [Suspect]
     Active Substance: OCTREOTIDE ACETATE
     Indication: ACROMEGALY
     Dosage: UNK
     Route: 065
     Dates: start: 2005
  4. FLUOXETINE [Concomitant]
     Active Substance: FLUOXETINE HYDROCHLORIDE
     Indication: PRODUCT USED FOR UNKNOWN INDICATION
     Route: 065

REACTIONS (18)
  - Vertigo [Unknown]
  - Malaise [Unknown]
  - Decreased interest [Unknown]
  - Injection site pain [Unknown]
  - Basal cell carcinoma [Unknown]
  - Postoperative wound complication [Unknown]
  - Decreased appetite [Unknown]
  - Fatigue [Unknown]
  - Visual acuity reduced [Unknown]
  - Feeling abnormal [Unknown]
  - Eye discharge [Unknown]
  - Constipation [Unknown]
  - Ill-defined disorder [Unknown]
  - Intrusive thoughts [Unknown]
  - Weight increased [Unknown]
  - Second primary malignancy [Unknown]
  - Arthralgia [Unknown]
  - Thyroid mass [Unknown]
